FAERS Safety Report 10386646 (Version 1)
Quarter: 2014Q1

REPORT INFORMATION
  Report Type: Spontaneous
  Country: US (occurrence: None)
  Receive Date: 20140306
  Receipt Date: 20140306
  Transmission Date: 20141002
  Serious: Yes (Other)
  Sender: FDA-Public Use
  Company Number: 163-21880-13120896

PATIENT
  Age: 93 Year
  Sex: Female

DRUGS (3)
  1. REVLIMID ?(LENALIDOMIDE 10 MILLIGRAM, CAPSULES) [Suspect]
     Indication: MYELODYSPLASTIC SYNDROME
     Dosage: 10 MG, 1 IN 1 D, PO 10/2010 - UNKNOWN THERAPY DATES
     Route: 048
     Dates: start: 201010
  2. CENTRUM [Concomitant]
  3. TAPAZOLE (THIAMAZOLE) [Concomitant]

REACTIONS (5)
  - Hypersensitivity [None]
  - Cystitis noninfective [None]
  - Pruritus [None]
  - Paraesthesia [None]
  - Hearing impaired [None]
